FAERS Safety Report 8218336-5 (Version None)
Quarter: 2012Q1

REPORT INFORMATION
  Report Type: 
  Country: None (occurrence: None)
  Receive Date: 20120319
  Receipt Date: 20120315
  Transmission Date: 20120608
  Serious: Yes (Hospitalization)
  Sender: FDA-Public Use
  Company Number: US-GLAXOSMITHKLINE-A0932400A

PATIENT
  Age: 70 Year
  Sex: Male
  Weight: 73.6 kg

DRUGS (8)
  1. SIMVASTATIN [Concomitant]
  2. PRAZOSIN HCL [Concomitant]
  3. BENICAR [Concomitant]
  4. LOPRESSOR [Concomitant]
  5. LEXAPRO [Concomitant]
  6. INSULIN [Concomitant]
  7. AVANDIA [Suspect]
     Indication: DIABETES MELLITUS
     Dosage: 4MG PER DAY
     Route: 048
  8. METFORMIN HYDROCHLORIDE [Concomitant]

REACTIONS (5)
  - CORONARY ARTERY BYPASS [None]
  - CORONARY ARTERY DISEASE [None]
  - CARDIOVASCULAR DISORDER [None]
  - ANGIOPATHY [None]
  - TEMPERATURE INTOLERANCE [None]
